FAERS Safety Report 8793067 (Version 2)
Quarter: 2015Q3

REPORT INFORMATION
  Report Type: Report from Study
  Country: US (occurrence: US)
  Receive Date: 20120917
  Receipt Date: 20150727
  Transmission Date: 20151125
  Serious: Yes (Death)
  Sender: FDA-Public Use
  Company Number: US-ROCHE-1127488

PATIENT
  Age: 21 Year
  Sex: Male

DRUGS (12)
  1. COUMADIN [Concomitant]
     Active Substance: WARFARIN SODIUM
     Route: 065
  2. AVASTIN [Suspect]
     Active Substance: BEVACIZUMAB
     Indication: BRAIN NEOPLASM MALIGNANT
     Route: 065
     Dates: start: 20060720
  3. TYLENOL #2 (UNITED STATES) [Concomitant]
     Route: 048
  4. ATIVAN [Concomitant]
     Active Substance: LORAZEPAM
     Route: 042
  5. IRINOTECAN [Concomitant]
     Active Substance: IRINOTECAN
     Route: 065
  6. ATROPINE. [Concomitant]
     Active Substance: ATROPINE
     Route: 065
  7. HEXADROL [Concomitant]
     Active Substance: DEXAMETHASONE
     Route: 065
  8. SANDOSTATIN [Concomitant]
     Active Substance: OCTREOTIDE ACETATE
     Route: 058
  9. ALOXI [Concomitant]
     Active Substance: PALONOSETRON HYDROCHLORIDE
     Route: 042
  10. BENADRYL [Concomitant]
     Active Substance: DIPHENHYDRAMINE HYDROCHLORIDE
     Route: 042
  11. PEGFILGRASTIM [Concomitant]
     Active Substance: PEGFILGRASTIM
     Route: 058
  12. ATROPINE. [Concomitant]
     Active Substance: ATROPINE
     Route: 042

REACTIONS (6)
  - Death [Fatal]
  - Nausea [Unknown]
  - Hemiparesis [Unknown]
  - Anaplastic oligodendroglioma [Unknown]
  - Off label use [Unknown]
  - Aphasia [Unknown]

NARRATIVE: CASE EVENT DATE: 20070109
